FAERS Safety Report 6257284-7 (Version None)
Quarter: 2009Q3

REPORT INFORMATION
  Report Type: 
  Country: None (occurrence: None)
  Receive Date: 20090706
  Receipt Date: 20090624
  Transmission Date: 20100115
  Serious: Yes (Death)
  Sender: FDA-Public Use
  Company Number: JP-ELI_LILLY_AND_COMPANY-JP200906006140

PATIENT
  Age: 61 Year
  Sex: Female

DRUGS (4)
  1. ZYPREXA [Suspect]
     Indication: SCHIZOPHRENIA
     Dosage: 15 MG, DAILY (1/D)
     Route: 048
  2. WYPAX [Concomitant]
     Dosage: 1 MG, DAILY (1/D)
     Route: 048
  3. BENZALIN [Concomitant]
     Dosage: 10 MG, DAILY (1/D)
     Route: 048
  4. SENNOSIDE [Concomitant]
     Dosage: 24 MG, UNK
     Route: 048

REACTIONS (1)
  - CHOKING [None]
